FAERS Safety Report 5506433-4 (Version None)
Quarter: 2007Q4

REPORT INFORMATION
  Report Type: 
  Country: None (occurrence: None)
  Receive Date: 20071101
  Receipt Date: 20071101
  Transmission Date: 20080405
  Serious: Yes (Life-Threatening)
  Sender: FDA-Public Use
  Company Number: None

PATIENT
  Age: 32 Year
  Sex: Female
  Weight: 100.2449 kg

DRUGS (1)
  1. MINOCYCLINE HCL [Suspect]
     Indication: ACNE
     Dosage: 100MG  2X DAILY  PO
     Route: 048
     Dates: start: 20071005, end: 20071020

REACTIONS (8)
  - CHROMATURIA [None]
  - CONFUSIONAL STATE [None]
  - DYSPHAGIA [None]
  - HEADACHE [None]
  - JOINT SWELLING [None]
  - PHARYNGEAL DISORDER [None]
  - URINE ODOUR ABNORMAL [None]
  - URTICARIA [None]
